FAERS Safety Report 16606963 (Version 1)
Quarter: 2019Q3

REPORT INFORMATION
  Report Type: Spontaneous
  Country: DE (occurrence: DE)
  Receive Date: 20190722
  Receipt Date: 20190722
  Transmission Date: 20191004
  Serious: Yes (Hospitalization)
  Sender: FDA-Public Use
  Company Number: DE-TEVA-2019-DE-1079304

PATIENT
  Age: 56 Year
  Sex: Male
  Weight: 84 kg

DRUGS (15)
  1. RAMIPRIL. [Suspect]
     Active Substance: RAMIPRIL
     Dosage: 2.5 MG, 1-0-0-0, TABLETS
     Route: 048
  2. THIAMIN [Concomitant]
     Active Substance: THIAMINE
     Dosage: 100 MG, 1-0-0-0, TABLETS
     Route: 048
  3. PANTOPRAZOL [Concomitant]
     Active Substance: PANTOPRAZOLE SODIUM
     Dosage: 40 MG, 1-0-0-0, TABLETS
     Route: 048
  4. CLOPIDOGREL [Concomitant]
     Active Substance: CLOPIDOGREL BISULFATE
     Dosage: 75 MG, 1-0-0-0, TABLETS
     Route: 048
  5. PAROXETINE. [Suspect]
     Active Substance: PAROXETINE
     Dosage: 40 MG, 1-0-0-0, PAUSE, TABLETS
     Route: 048
  6. METFORMIN/SITAGLIPTIN [Concomitant]
     Active Substance: METFORMIN\SITAGLIPTIN
     Dosage: 1000/50 MG, 1-0-1-0, TABLETS
     Route: 048
  7. EMPAGLIFLOZIN [Concomitant]
     Active Substance: EMPAGLIFLOZIN
     Dosage: 10 MG, 1-0-0-0, TABLETS
     Route: 048
  8. APIXABAN [Concomitant]
     Active Substance: APIXABAN
     Dosage: 2.5 MG, 1-0-1-0, TABLETS
     Route: 048
  9. BISOPROLOL [Concomitant]
     Active Substance: BISOPROLOL
     Dosage: 5 MG, 1-0-0-0, TABLETS
     Route: 048
  10. SPIRONOLACTONE. [Suspect]
     Active Substance: SPIRONOLACTONE
     Dosage: 25 MG, 1-0-0-0, TABLETS
     Route: 048
  11. INSULIN DETEMIR [Concomitant]
     Active Substance: INSULIN DETEMIR
     Dosage: NK IE, ACCORDING TO PLAN, SOLUTION FOR INJECTION/INFUSION
     Route: 058
  12. FLUPENTIXOL [Suspect]
     Active Substance: FLUPENTIXOL
     Dosage: 0.5 MG, 1-0-0-0, DRAGEES
     Route: 048
  13. INSULIN ASPART [Concomitant]
     Active Substance: INSULIN ASPART
     Dosage: NK IE, ACCORDING TO PLAN, SOLUTION FOR INJECTION/INFUSION
     Route: 058
  14. ATORVASTATIN [Concomitant]
     Active Substance: ATORVASTATIN
     Dosage: 80 MG, 0-0-1-0, TABLETS
     Route: 048
  15. DOMINAL FORTE 80MG [Suspect]
     Active Substance: PROTHIPENDYL HYDROCHLORIDE
     Dosage: 80 MG, 0-0-0-1, TABLETS
     Route: 048

REACTIONS (5)
  - Depressed level of consciousness [Unknown]
  - Agitation [Unknown]
  - General physical health deterioration [Unknown]
  - Syncope [Unknown]
  - Product prescribing error [Unknown]
